FAERS Safety Report 4950679-0 (Version None)
Quarter: 2006Q1

REPORT INFORMATION
  Report Type: 
  Country: None (occurrence: None)
  Receive Date: 20060322
  Receipt Date: 20051003
  Transmission Date: 20060701
  Serious: Yes (Hospitalization, Disabling)
  Sender: FDA-Public Use
  Company Number: US-MERCK-0510USA02714

PATIENT
  Age: 54 Year
  Sex: Female
  Weight: 86 kg

DRUGS (3)
  1. VIOXX [Suspect]
     Indication: OSTEOARTHRITIS
     Route: 048
     Dates: start: 20010929, end: 20030120
  2. CLARITIN-D [Concomitant]
     Route: 048
  3. REMIFEMIN [Concomitant]
     Route: 048

REACTIONS (5)
  - ANXIETY [None]
  - ARTHROPATHY [None]
  - BRONCHITIS CHRONIC [None]
  - CARDIAC DISORDER [None]
  - MYOCARDIAL INFARCTION [None]
